FAERS Safety Report 6931554-9 (Version None)
Quarter: 2010Q3

REPORT INFORMATION
  Report Type: 
  Country: None (occurrence: None)
  Receive Date: 20100813
  Receipt Date: 20100421
  Transmission Date: 20110219
  Serious: No
  Sender: FDA-Public Use
  Company Number: 1000013308

PATIENT
  Age: 71 Year
  Sex: Female

DRUGS (21)
  1. SAVELLA [Suspect]
     Indication: FIBROMYALGIA
     Dosage: 12.5 MG (12.5 MG, 1 IN 1 D), ORAL
     Route: 048
     Dates: start: 20091109, end: 20091109
  2. SAVELLA [Suspect]
     Indication: FIBROMYALGIA
     Dosage: 25 MG (12.5 MG, 2 IN1  D), ORAL; 12.5 MG (12.5 MG, 1 IN 1 D), ORAL
     Route: 048
     Dates: start: 20091110, end: 20091116
  3. SAVELLA [Suspect]
     Indication: FIBROMYALGIA
     Dosage: 25 MG (12.5 MG, 2 IN1  D), ORAL; 12.5 MG (12.5 MG, 1 IN 1 D), ORAL
     Route: 048
     Dates: start: 20091117
  4. MICRO-K (8 MILLIEQUIVALENTS) [Concomitant]
  5. LORAZEPAM (1 MILLIGRAM, TABLETS) [Concomitant]
  6. LOVAZA [Concomitant]
  7. ROBAXIN (750 MILLIGRAM) [Concomitant]
  8. VITAMIN E (100 IU (INTERNATIONAL UNIT)) [Concomitant]
  9. MOTRIN (400 MILLIGRAM, TABLETS) [Concomitant]
  10. PROCARDIA XL (60 MILLIGRAM) [Concomitant]
  11. AMBIEN (10 MILLIGRAM, TABLETS) [Concomitant]
  12. SYNTHROID (0.1 MILLIGRAM) [Concomitant]
  13. IRON [Concomitant]
  14. ACIDOPHILUS [Concomitant]
  15. MAGNESIUM OXIDE [Concomitant]
  16. PHENOBARBITAL [Concomitant]
  17. PREVACID (30 MILLIGRAM) [Concomitant]
  18. GARLIC [Concomitant]
  19. CALCIUM [Concomitant]
  20. PAXIL (10 MILLIGRAM, TABLETS) [Concomitant]
  21. VENTOLIN (INHALANT) [Concomitant]

REACTIONS (5)
  - DISTURBANCE IN ATTENTION [None]
  - DIZZINESS [None]
  - NAUSEA [None]
  - PAIN [None]
  - PARAESTHESIA [None]
